FAERS Safety Report 4907222-1 (Version None)
Quarter: 2006Q1

REPORT INFORMATION
  Report Type: 
  Country: None (occurrence: None)
  Receive Date: 20060207
  Receipt Date: 20060124
  Transmission Date: 20060701
  Serious: Yes (Death, Life-Threatening, Hospitalization, Disabling, Other)
  Sender: FDA-Public Use
  Company Number: 2005EN000290

PATIENT
  Age: 10 Year
  Sex: Male
  Weight: 36 kg

DRUGS (5)
  1. ADAGEN [Suspect]
     Indication: COMBINED IMMUNODEFICIENCY
     Dosage: 500 IU; QW; IM
     Route: 030
     Dates: start: 20031217
  2. ADDERALL 10 [Concomitant]
  3. CLARINEX [Concomitant]
  4. SULFAMETHOXAZOLE [Concomitant]
  5. TRIMETHOPRIM [Concomitant]

REACTIONS (14)
  - ASTHENIA [None]
  - B-CELL LYMPHOMA [None]
  - BRAIN ABSCESS [None]
  - BURKITT'S LYMPHOMA [None]
  - CENTRAL NERVOUS SYSTEM LYMPHOMA [None]
  - DECREASED APPETITE [None]
  - DRUG INEFFECTIVE [None]
  - FACIAL PALSY [None]
  - GAZE PALSY [None]
  - HAEMOLYTIC ANAEMIA [None]
  - HEADACHE [None]
  - HEMIPARESIS [None]
  - STRABISMUS [None]
  - WEIGHT DECREASED [None]
